FAERS Safety Report 23937747 (Version 1)
Quarter: 2024Q2

REPORT INFORMATION
  Report Type: Spontaneous
  Country: CN (occurrence: CN)
  Receive Date: 20240604
  Receipt Date: 20240604
  Transmission Date: 20240716
  Serious: Yes (Life-Threatening, Hospitalization)
  Sender: FDA-Public Use
  Company Number: CN-SHANGHAI JUNSHI BIOSCIENCES CO., LTD.-CN2024010224

PATIENT

DRUGS (5)
  1. TORIPALIMAB [Suspect]
     Active Substance: TORIPALIMAB
     Indication: Gallbladder adenocarcinoma
     Dosage: 240 MG (D2, 25 DROPS/MIN)
     Route: 041
     Dates: start: 20240513, end: 20240514
  2. GEMCITABINE HYDROCHLORIDE [Suspect]
     Active Substance: GEMCITABINE HYDROCHLORIDE
     Indication: Gallbladder adenocarcinoma
     Dosage: 1300 MG (D1, 50 DROPS/MIN) VIA INTRAVENOUS DRIP FOR 30 MINUTES
     Route: 041
     Dates: start: 20240513, end: 20240513
  3. GIMERACIL\OTERACIL\TEGAFUR [Suspect]
     Active Substance: GIMERACIL\OTERACIL POTASSIUM\TEGAFUR
     Indication: Gallbladder adenocarcinoma
     Dosage: 40 MG (D1-D14), ONCE HALF AN HOUR AFTER BREAKFAST AND DINNER
     Route: 041
     Dates: start: 20240513, end: 20240523
  4. SODIUM CHLORIDE [Concomitant]
     Active Substance: SODIUM CHLORIDE
     Indication: Medication dilution
     Dosage: 100 ML (D1, 50 DROPS/MIN) VIA INTRAVENOUS DRIP FOR 30 MINUTES
     Route: 041
     Dates: start: 20240513, end: 20240513
  5. SODIUM CHLORIDE [Concomitant]
     Active Substance: SODIUM CHLORIDE
     Dosage: 100 ML (D2, 25 DROPS/MIN)
     Route: 041
     Dates: start: 20240513, end: 20240513

REACTIONS (4)
  - Myelosuppression [Recovering/Resolving]
  - Pyrexia [Recovering/Resolving]
  - Colitis [Recovering/Resolving]
  - Off label use [Unknown]

NARRATIVE: CASE EVENT DATE: 20240513
